FAERS Safety Report 6575302-3 (Version None)
Quarter: 2010Q1

REPORT INFORMATION
  Report Type: 
  Country: None (occurrence: None)
  Receive Date: 20100202
  Receipt Date: 20100128
  Transmission Date: 20100710
  Serious: Yes (Other)
  Sender: FDA-Public Use
  Company Number: ALL1-2010-00386

PATIENT
  Age: 96 Year
  Sex: Female

DRUGS (4)
  1. FOSRENOL [Suspect]
     Indication: HYPERPHOSPHATAEMIA
     Dosage: SEE IMAGE
     Route: 048
     Dates: start: 20090801
  2. FOSRENOL [Suspect]
     Indication: HYPERPHOSPHATAEMIA
     Dosage: SEE IMAGE
     Route: 048
     Dates: start: 20090801
  3. FOSRENOL [Suspect]
     Indication: HYPERPHOSPHATAEMIA
     Dosage: SEE IMAGE
     Route: 048
     Dates: start: 20090801
  4. INSULIN [Concomitant]

REACTIONS (4)
  - ANGIOPLASTY [None]
  - DIARRHOEA [None]
  - OVERDOSE [None]
  - VASCULAR GRAFT COMPLICATION [None]
